FAERS Safety Report 22300686 (Version 2)
Quarter: 2023Q2

REPORT INFORMATION
  Report Type: Spontaneous
  Country: US (occurrence: US)
  Receive Date: 20230509
  Receipt Date: 20230512
  Transmission Date: 20230721
  Serious: Yes (Other)
  Sender: FDA-Public Use
  Company Number: US-PFIZER INC-202300178049

PATIENT
  Sex: Male

DRUGS (1)
  1. BOSULIF [Suspect]
     Active Substance: BOSUTINIB MONOHYDRATE
     Indication: Neoplasm malignant
     Dosage: UNK

REACTIONS (9)
  - Renal impairment [Unknown]
  - Fatigue [Unknown]
  - Asthenia [Unknown]
  - Weight increased [Unknown]
  - Malaise [Unknown]
  - Red blood cell count increased [Unknown]
  - Sleep apnoea syndrome [Unknown]
  - Vitamin D decreased [Unknown]
  - Blood glucose increased [Unknown]
